FAERS Safety Report 22523062 (Version 1)
Quarter: 2023Q2

REPORT INFORMATION
  Report Type: Spontaneous
  Country: ES (occurrence: ES)
  Receive Date: 20230606
  Receipt Date: 20230606
  Transmission Date: 20230722
  Serious: Yes (Hospitalization, Other)
  Sender: FDA-Public Use
  Company Number: ES-CELLTRION INC.-2023ES011260

PATIENT

DRUGS (2)
  1. RITUXIMAB [Suspect]
     Active Substance: RITUXIMAB
     Indication: Microscopic polyangiitis
     Dosage: UNK
  2. ELASOMERAN [Suspect]
     Active Substance: ELASOMERAN
     Indication: COVID-19 immunisation

REACTIONS (2)
  - Chronic respiratory disease [Unknown]
  - Humoral immune defect [Unknown]
